FAERS Safety Report 19981383 (Version 1)
Quarter: 2021Q4

REPORT INFORMATION
  Report Type: Spontaneous
  Country: DE (occurrence: DE)
  Receive Date: 20211021
  Receipt Date: 20211021
  Transmission Date: 20220303
  Serious: Yes (Hospitalization, Other)
  Sender: FDA-Public Use
  Company Number: DE-GLAXOSMITHKLINE-DE2021EME191150

PATIENT
  Sex: Male

DRUGS (7)
  1. IBUPROFEN [Suspect]
     Active Substance: IBUPROFEN
     Indication: Suicide attempt
     Dosage: 8000 MILLIGRAM DAILY;
     Route: 065
     Dates: start: 20210814, end: 20210814
  2. THEOPHYLLINE ANHYDROUS [Suspect]
     Active Substance: THEOPHYLLINE ANHYDROUS
     Indication: Suicide attempt
     Dosage: UNK
     Route: 065
     Dates: start: 20210814, end: 20210814
  3. ALBUTEROL [Suspect]
     Active Substance: ALBUTEROL
     Indication: Suicide attempt
     Dosage: UNK
     Route: 065
     Dates: start: 20210814, end: 20210814
  4. FOSTER [Suspect]
     Active Substance: BECLOMETHASONE\FORMOTEROL
     Indication: Suicide attempt
     Dosage: UNK, PRESSURISED INHALATION SOLUTION
     Route: 065
     Dates: start: 20210814, end: 20210814
  5. PIROXICAM [Suspect]
     Active Substance: PIROXICAM
     Indication: Suicide attempt
     Dosage: UNK
     Route: 065
     Dates: start: 20210814, end: 20210814
  6. PANTOPRAZOLE [Suspect]
     Active Substance: PANTOPRAZOLE
     Indication: Suicide attempt
     Dosage: UNK
     Route: 065
     Dates: start: 20210814, end: 20210814
  7. EBASTINE [Suspect]
     Active Substance: EBASTINE
     Indication: Suicide attempt
     Dosage: UNK
     Route: 065
     Dates: start: 20210814, end: 20210814

REACTIONS (8)
  - Blood pressure decreased [Recovering/Resolving]
  - Chills [Recovering/Resolving]
  - Somnolence [Recovering/Resolving]
  - Blood glucose increased [Recovering/Resolving]
  - Drug abuse [Recovered/Resolved]
  - Suicide attempt [Unknown]
  - Electrocardiogram ST segment elevation [Recovering/Resolving]
  - Hyperglycaemia [Recovering/Resolving]

NARRATIVE: CASE EVENT DATE: 20210814
